FAERS Safety Report 17105520 (Version 1)
Quarter: 2019Q4

REPORT INFORMATION
  Report Type: Spontaneous
  Country: HR (occurrence: HR)
  Receive Date: 20191203
  Receipt Date: 20191203
  Transmission Date: 20200122
  Serious: Yes (Other)
  Sender: FDA-Public Use
  Company Number: HR-TEVA-2019-HR-1145017

PATIENT
  Sex: Male

DRUGS (4)
  1. KLAVOCIN [Suspect]
     Active Substance: AMOXICILLIN\CLAVULANIC ACID
     Dosage: UNSPECIFIED
     Route: 048
     Dates: start: 201909, end: 201909
  2. CEFUROXIME. [Suspect]
     Active Substance: CEFUROXIME
     Dosage: UNSPECIFIED
     Route: 048
     Dates: start: 201909, end: 201909
  3. SKOPRYL [Suspect]
     Active Substance: LISINOPRIL
     Route: 048
     Dates: start: 201909, end: 201909
  4. BRUFEN [Suspect]
     Active Substance: IBUPROFEN
     Dosage: UNSPECIFIED
     Route: 048
     Dates: start: 201909, end: 201909

REACTIONS (2)
  - Suicide attempt [Unknown]
  - Intentional overdose [Unknown]

NARRATIVE: CASE EVENT DATE: 201909
